FAERS Safety Report 25113157 (Version 1)
Quarter: 2025Q1

REPORT INFORMATION
  Report Type: Spontaneous
  Country: RU (occurrence: RU)
  Receive Date: 20250324
  Receipt Date: 20250324
  Transmission Date: 20250409
  Serious: Yes (Other)
  Sender: ALEXION PHARMACEUTICALS
  Company Number: RU-ASTRAZENECA-202503RUS015998RU

PATIENT

DRUGS (1)
  1. PULMICORT TURBUHALER [Suspect]
     Active Substance: BUDESONIDE
     Route: 065

REACTIONS (4)
  - Bronchial obstruction [Unknown]
  - Cough [Unknown]
  - Bronchitis [Unknown]
  - Drug ineffective [Unknown]
